FAERS Safety Report 15704287 (Version 1)
Quarter: 2018Q4

REPORT INFORMATION
  Report Type: Spontaneous
  Country: US (occurrence: US)
  Receive Date: 20181210
  Receipt Date: 20181210
  Transmission Date: 20190205
  Serious: Yes (Hospitalization)
  Sender: FDA-Public Use
  Company Number: None

PATIENT
  Age: 66 Year
  Sex: Male

DRUGS (14)
  1. EMPAGLIFLOZIN [Suspect]
     Active Substance: EMPAGLIFLOZIN
  2. DULAGLUTIDE. [Concomitant]
     Active Substance: DULAGLUTIDE
  3. MAGNESIUM [Concomitant]
     Active Substance: MAGNESIUM
  4. DULOXETINE. [Concomitant]
     Active Substance: DULOXETINE
  5. MULTIVITE [Concomitant]
     Active Substance: VITAMINS
  6. REPAGLINIDE. [Concomitant]
     Active Substance: REPAGLINIDE
  7. AVANAFIL [Concomitant]
     Active Substance: AVANAFIL
  8. CARBIDOPA-LEVODOPA [Concomitant]
     Active Substance: CARBIDOPA\LEVODOPA
  9. DAPAGLIFLOZIN. [Suspect]
     Active Substance: DAPAGLIFLOZIN
     Indication: DIABETES MELLITUS
  10. METFORMIN [Concomitant]
     Active Substance: METFORMIN HYDROCHLORIDE
  11. HCTZ [Concomitant]
     Active Substance: HYDROCHLOROTHIAZIDE
  12. ASA [Concomitant]
     Active Substance: ASPIRIN
  13. LANTUS [Concomitant]
     Active Substance: INSULIN GLARGINE
  14. PROTONIX [Concomitant]
     Active Substance: PANTOPRAZOLE SODIUM

REACTIONS (2)
  - Acute kidney injury [None]
  - Diabetic ketoacidosis [None]

NARRATIVE: CASE EVENT DATE: 20180908
